FAERS Safety Report 7808617-9 (Version None)
Quarter: 2011Q4

REPORT INFORMATION
  Report Type: 
  Country: None (occurrence: None)
  Receive Date: 20111012
  Receipt Date: 20111005
  Transmission Date: 20120403
  Serious: No
  Sender: FDA-Public Use
  Company Number: US-PFIZER INC-2011238975

PATIENT
  Sex: Male
  Weight: 132 kg

DRUGS (7)
  1. ATENOLOL [Concomitant]
     Dosage: 25 MG, UNK
     Route: 048
  2. ACETYLSALICYLIC ACID [Concomitant]
     Dosage: 81 MG, UNK
     Route: 048
  3. NIACIN [Concomitant]
     Dosage: 500 MG, UNK
     Route: 048
  4. SUTENT [Suspect]
     Indication: RENAL CANCER
     Dosage: 37.5 MG, 1X/DAY, FOR 28 DAYS THEN 14 DAYS OFF
     Route: 048
  5. LISINOPRIL [Concomitant]
     Dosage: 20 MG, UNK
     Route: 048
  6. ZOCOR [Concomitant]
     Dosage: 5 MG, UNK
     Route: 048
  7. METFORMIN [Concomitant]
     Dosage: 500 MG, UNK
     Route: 048

REACTIONS (1)
  - HAIR COLOUR CHANGES [None]
